FAERS Safety Report 5060001-X (Version None)
Quarter: 2006Q3

REPORT INFORMATION
  Report Type: 
  Country: None (occurrence: None)
  Receive Date: 20060719
  Receipt Date: 20060711
  Transmission Date: 20061208
  Serious: Yes (Death)
  Sender: FDA-Public Use
  Company Number: 2006JP002145

PATIENT
  Age: 78 Year
  Sex: Female

DRUGS (8)
  1. VESICARE [Suspect]
     Dosage: 5 MG ORAL
     Route: 048
     Dates: start: 20060619
  2. NORVASC [Concomitant]
  3. DIGOXIN [Concomitant]
  4. WARFARIN SODIUM [Concomitant]
  5. ASPARA-CA (ASPARTATE CALCIUM) [Concomitant]
  6. OENALFA (ALFACALCIDOL) [Concomitant]
  7. LORAZEPAM [Concomitant]
  8. DEPAS (ETIZOLAM) [Concomitant]

REACTIONS (1)
  - CEREBRAL INFARCTION [None]
